FAERS Safety Report 16880385 (Version 2)
Quarter: 2020Q1

REPORT INFORMATION
  Report Type: Report from Study
  Country: TZ (occurrence: TZ)
  Receive Date: 20191003
  Receipt Date: 20200318
  Transmission Date: 20200409
  Serious: Yes (Other)
  Sender: FDA-Public Use
  Company Number: TZ-JNJFOC-20190938326

PATIENT
  Age: 37 Year
  Sex: Female
  Weight: 51.6 kg

DRUGS (9)
  1. BEDAQUILINE [Suspect]
     Active Substance: BEDAQUILINE
     Indication: PULMONARY TUBERCULOSIS
     Route: 048
     Dates: start: 20190814, end: 20190913
  2. MOXIFLOXACIN. [Suspect]
     Active Substance: MOXIFLOXACIN
     Indication: PULMONARY TUBERCULOSIS
     Route: 048
     Dates: start: 20190814, end: 20190913
  3. MELOXICAM. [Concomitant]
     Active Substance: MELOXICAM
     Indication: NON-CARDIAC CHEST PAIN
     Route: 048
     Dates: start: 20190930, end: 20191002
  4. TROPICAMIDE. [Concomitant]
     Active Substance: TROPICAMIDE
     Indication: MYDRIASIS
     Dosage: 1 DROP ONCE
     Route: 061
     Dates: start: 20190813, end: 20190813
  5. TROPAC-P [Concomitant]
     Indication: MYDRIASIS
     Dosage: 1 DROP ONCE; PHENYLEPHRINE HYDROCHLORIDE,TROPICAMIDE,BENZALKONIUM CHLORIDE
     Route: 061
     Dates: start: 20191030, end: 20191030
  6. PRETOMANID [Suspect]
     Active Substance: PRETOMANID
     Indication: PULMONARY TUBERCULOSIS
     Route: 048
     Dates: start: 20190814, end: 20190913
  7. PYRAZINAMIDE. [Suspect]
     Active Substance: PYRAZINAMIDE
     Indication: PULMONARY TUBERCULOSIS
     Route: 048
     Dates: start: 20190814, end: 20190913
  8. ETONOGESTREL [Concomitant]
     Active Substance: ETONOGESTREL
     Indication: CONTRACEPTION
     Route: 058
     Dates: start: 20190826, end: 20190826
  9. MELOXICAM. [Concomitant]
     Active Substance: MELOXICAM
     Indication: PYREXIA

REACTIONS (1)
  - Hepatotoxicity [Recovered/Resolved]

NARRATIVE: CASE EVENT DATE: 20190913
